FAERS Safety Report 9465320 (Version 2)
Quarter: 2013Q3

REPORT INFORMATION
  Report Type: Spontaneous
  Country: BR (occurrence: BR)
  Receive Date: 20130820
  Receipt Date: 20130820
  Transmission Date: 20140515
  Serious: Yes (Other)
  Sender: FDA-Public Use
  Company Number: BR-AMGEN-BRASP2012001841

PATIENT
  Age: 51 Year
  Sex: Male
  Weight: 79 kg

DRUGS (5)
  1. ENBREL [Suspect]
     Indication: RHEUMATOID ARTHRITIS
     Dosage: 50 MG, 1X/WEEK
     Route: 058
     Dates: start: 20111216
  2. ENBREL [Suspect]
     Dosage: 50 MG, QWK
     Route: 058
     Dates: end: 201304
  3. FOLIC ACID [Concomitant]
     Dosage: 5 MG, 3X/WEEK
  4. PREDNISONE [Concomitant]
     Dosage: 5 MG, 1X/DAY
  5. METHOTREXATE [Concomitant]
     Dosage: 2.5 MG 4 TABLETS ONCE A WEEK

REACTIONS (8)
  - Neoplasm [Unknown]
  - Decreased immune responsiveness [Unknown]
  - Asthenia [Unknown]
  - Malaise [Unknown]
  - Injection site pain [Unknown]
  - Injection site erythema [Unknown]
  - Injection site induration [Unknown]
  - Injection site pruritus [Unknown]
